FAERS Safety Report 4622182-9 (Version None)
Quarter: 2005Q1

REPORT INFORMATION
  Report Type: 
  Country: None (occurrence: None)
  Receive Date: 20050329
  Receipt Date: 20050321
  Transmission Date: 20050727
  Serious: Yes (Other)
  Sender: FDA-Public Use
  Company Number: 205320

PATIENT
  Age: 38 Year
  Sex: Male

DRUGS (2)
  1. EFALIZUMAB (EFALIZUMAB)PWDR + SOLVENT, INJECTION SOLN 125 MG [Suspect]
     Indication: PSORIASIS
     Dosage: SEE IMAGE
     Route: 058
     Dates: start: 20030527, end: 20030812
  2. EFALIZUMAB (EFALIZUMAB)PWDR + SOLVENT, INJECTION SOLN 125 MG [Suspect]
     Indication: PSORIASIS
     Dosage: SEE IMAGE
     Route: 058
     Dates: start: 20031111, end: 20031118

REACTIONS (3)
  - ASTHENIA [None]
  - MYOSITIS [None]
  - PARAESTHESIA [None]
